FAERS Safety Report 15890587 (Version 1)
Quarter: 2019Q1

REPORT INFORMATION
  Report Type: Spontaneous
  Country: US (occurrence: US)
  Receive Date: 20190130
  Receipt Date: 20190130
  Transmission Date: 20190417
  Serious: Yes (Disabling)
  Sender: FDA-Public Use
  Company Number: None

PATIENT
  Age: 72 Year
  Sex: Female
  Weight: 58.5 kg

DRUGS (1)
  1. GADAVIST [Suspect]
     Active Substance: GADOBUTROL
     Indication: NUCLEAR MAGNETIC RESONANCE IMAGING
     Route: 042
     Dates: start: 20181024, end: 20181024

REACTIONS (29)
  - Cognitive disorder [None]
  - Pain in extremity [None]
  - Gait disturbance [None]
  - Eye pruritus [None]
  - Dysarthria [None]
  - Photophobia [None]
  - Dry eye [None]
  - Eye irritation [None]
  - Nausea [None]
  - Balance disorder [None]
  - Pain [None]
  - Muscle twitching [None]
  - Memory impairment [None]
  - Dyspnoea [None]
  - Dizziness [None]
  - Toothache [None]
  - Gingival bleeding [None]
  - Eye contusion [None]
  - Bone pain [None]
  - Dysgeusia [None]
  - Formication [None]
  - Skin laceration [None]
  - Headache [None]
  - Pruritus [None]
  - Muscle spasms [None]
  - Disorientation [None]
  - Impaired healing [None]
  - Hypoaesthesia [None]
  - Dyskinesia [None]

NARRATIVE: CASE EVENT DATE: 20181024
